FAERS Safety Report 13525114 (Version 1)
Quarter: 2017Q2

REPORT INFORMATION
  Report Type: Spontaneous
  Country: US (occurrence: US)
  Receive Date: 20170508
  Receipt Date: 20170508
  Transmission Date: 20170830
  Serious: No
  Sender: FDA-Public Use
  Company Number: US-ROCHE-1003488

PATIENT
  Age: 68 Year
  Sex: Male

DRUGS (2)
  1. AVASTIN [Suspect]
     Active Substance: BEVACIZUMAB
     Indication: RENAL CELL CARCINOMA
     Route: 042
     Dates: start: 201101
  2. INTERFERON NOS [Concomitant]
     Active Substance: INTERFERON
     Route: 065

REACTIONS (1)
  - Splenomegaly [Not Recovered/Not Resolved]
